FAERS Safety Report 6675561-2 (Version None)
Quarter: 2010Q2

REPORT INFORMATION
  Report Type: 
  Country: None (occurrence: None)
  Receive Date: 20100409
  Receipt Date: 20100329
  Transmission Date: 20101027
  Serious: Yes (Other)
  Sender: FDA-Public Use
  Company Number: PHHY2010US20591

PATIENT

DRUGS (1)
  1. RECLAST [Suspect]
     Route: 042

REACTIONS (7)
  - CONVULSION [None]
  - FATIGUE [None]
  - FEELING ABNORMAL [None]
  - HYPOKINESIA [None]
  - INFLUENZA LIKE ILLNESS [None]
  - MYDRIASIS [None]
  - PYREXIA [None]
